FAERS Safety Report 25535140 (Version 1)
Quarter: 2025Q3

REPORT INFORMATION
  Report Type: Spontaneous
  Country: IN (occurrence: IN)
  Receive Date: 20250709
  Receipt Date: 20250709
  Transmission Date: 20251020
  Serious: Yes (Life-Threatening, Hospitalization)
  Sender: RELIANCE GENEMEDIX
  Company Number: IN-RLS PMS-000216

PATIENT
  Age: 36 Year
  Sex: Male
  Weight: 54 kg

DRUGS (1)
  1. CAPECITABINE [Suspect]
     Active Substance: CAPECITABINE
     Indication: Rectosigmoid cancer
     Route: 048
     Dates: start: 20250601, end: 20250607

REACTIONS (2)
  - Stoma site haemorrhage [Not Recovered/Not Resolved]
  - Haematuria [Not Recovered/Not Resolved]

NARRATIVE: CASE EVENT DATE: 20250607
